FAERS Safety Report 5411738-1 (Version None)
Quarter: 2007Q3

REPORT INFORMATION
  Report Type: 
  Country: None (occurrence: None)
  Receive Date: 20070813
  Receipt Date: 20070731
  Transmission Date: 20080115
  Serious: Yes (Hospitalization)
  Sender: FDA-Public Use
  Company Number: PHHO2007AR12911

PATIENT
  Age: 82 Year
  Sex: Female

DRUGS (3)
  1. ZELNORM [Suspect]
     Indication: CONSTIPATION
     Dosage: BID
     Dates: end: 20070730
  2. SUPRADYN [Concomitant]
  3. TRIMEBUTINE [Concomitant]

REACTIONS (3)
  - ABDOMINAL PAIN [None]
  - DIVERTICULUM [None]
  - REFUSAL OF TREATMENT BY PATIENT [None]
